FAERS Safety Report 21645951 (Version 1)
Quarter: 2022Q4

REPORT INFORMATION
  Report Type: Report from Study
  Country: US (occurrence: US)
  Receive Date: 20221126
  Receipt Date: 20221126
  Transmission Date: 20230112
  Serious: No
  Sender: FDA-Public Use
  Company Number: US-ABBVIE-4166801

PATIENT
  Sex: Male

DRUGS (1)
  1. HUMIRA [Suspect]
     Active Substance: ADALIMUMAB
     Indication: Psoriasis
     Route: 058

REACTIONS (5)
  - Skin disorder [Not Recovered/Not Resolved]
  - Joint swelling [Unknown]
  - Hypoaesthesia [Unknown]
  - Skin exfoliation [Not Recovered/Not Resolved]
  - Paraesthesia [Unknown]
